FAERS Safety Report 21577916 (Version 1)
Quarter: 2022Q4

REPORT INFORMATION
  Report Type: Spontaneous
  Country: US (occurrence: US)
  Receive Date: 20221110
  Receipt Date: 20221110
  Transmission Date: 20230113
  Serious: No
  Sender: FDA-Public Use
  Company Number: US-GLAUKOS-AVE-2022-0092-AE

PATIENT

DRUGS (3)
  1. PHOTREXA VISCOUS [Suspect]
     Active Substance: RIBOFLAVIN 5^-PHOSPHATE SODIUM
     Indication: Keratoconus
     Route: 047
     Dates: start: 20220422, end: 20220422
  2. PHOTREXA [Suspect]
     Active Substance: RIBOFLAVIN 5^-PHOSPHATE SODIUM
     Indication: Keratoconus
     Dosage: 3 MINUTES
     Route: 047
     Dates: start: 20220422, end: 20220422
  3. DEVICE [Suspect]
     Active Substance: DEVICE
     Indication: Keratoconus
     Dosage: 3 MINUTES
     Route: 047
     Dates: start: 20220422, end: 20220422

REACTIONS (3)
  - Therapy cessation [Unknown]
  - Incorrect product administration duration [Unknown]
  - No adverse event [Unknown]

NARRATIVE: CASE EVENT DATE: 20220422
